FAERS Safety Report 14257336 (Version 3)
Quarter: 2018Q1

REPORT INFORMATION
  Report Type: Report from Study
  Country: None (occurrence: US)
  Receive Date: 20171207
  Receipt Date: 20180322
  Transmission Date: 20180508
  Serious: Yes (Other)
  Sender: FDA-Public Use
  Company Number: US-ABBVIE-17K-163-2110086-00

PATIENT
  Sex: Male

DRUGS (2)
  1. HUMIRA [Suspect]
     Active Substance: ADALIMUMAB
     Indication: COLITIS ULCERATIVE
     Route: 058
  2. HUMIRA [Suspect]
     Active Substance: ADALIMUMAB
     Dosage: INCREASED DOSE
     Route: 058
     Dates: end: 201802

REACTIONS (4)
  - Drug level decreased [Not Recovered/Not Resolved]
  - Drug effect incomplete [Unknown]
  - Colitis ulcerative [Unknown]
  - Intestinal polyp [Recovered/Resolved]
